FAERS Safety Report 9765233 (Version 1)
Quarter: 2013Q4

REPORT INFORMATION
  Report Type: Spontaneous
  Country: US (occurrence: US)
  Receive Date: 20131217
  Receipt Date: 20131217
  Transmission Date: 20140711
  Serious: No
  Sender: FDA-Public Use
  Company Number: US-GLAXOSMITHKLINE-A1002975A

PATIENT
  Age: 68 Year
  Sex: Male

DRUGS (6)
  1. VOTRIENT [Suspect]
     Indication: MALIGNANT URINARY TRACT NEOPLASM
     Dosage: 800MG UNKNOWN
     Route: 048
     Dates: start: 201210
  2. RADIATION [Concomitant]
  3. CLINICAL STUDY MEDICATION [Concomitant]
     Indication: PROPHYLAXIS
     Route: 042
  4. LISINOPRIL [Concomitant]
  5. IMODIUM [Concomitant]
  6. PROCHLORPERAZINE [Concomitant]

REACTIONS (7)
  - Diarrhoea [Unknown]
  - Nausea [Unknown]
  - Hypertension [Unknown]
  - Drug intolerance [Unknown]
  - Drug administration error [Unknown]
  - Hepatic enzyme increased [Unknown]
  - Blood pressure increased [Unknown]
